FAERS Safety Report 14233886 (Version 1)
Quarter: 2017Q4

REPORT INFORMATION
  Report Type: Spontaneous
  Country: CA (occurrence: CA)
  Receive Date: 20171129
  Receipt Date: 20171129
  Transmission Date: 20180321
  Serious: Yes (Death, Other)
  Sender: FDA-Public Use
  Company Number: CA-ALEXION PHARMACEUTICALS INC.-A201713166

PATIENT
  Age: 40 Week
  Sex: Female
  Weight: 3.3 kg

DRUGS (3)
  1. STRENSIQ [Suspect]
     Active Substance: ASFOTASE ALFA
     Dosage: 3 MG/KG, UNK
     Route: 065
  2. STRENSIQ [Suspect]
     Active Substance: ASFOTASE ALFA
     Indication: HYPOPHOSPHATASIA
     Dosage: 2 MG/KG, TIW
     Route: 058
  3. STRENSIQ [Suspect]
     Active Substance: ASFOTASE ALFA
     Dosage: 9 MG/KG, UNK
     Route: 065

REACTIONS (7)
  - Blood alkaline phosphatase increased [Unknown]
  - Weaning failure [Unknown]
  - Irritability [Unknown]
  - Respiratory distress [Fatal]
  - Hypercalcaemia [Unknown]
  - Hypocalcaemia [Unknown]
  - Osteopenia [Unknown]
